FAERS Safety Report 12387259 (Version 1)
Quarter: 2016Q2

REPORT INFORMATION
  Report Type: Not Available
  Country: GB (occurrence: GB)
  Receive Date: 20160519
  Receipt Date: 20160519
  Transmission Date: 20160815
  Serious: Yes (Disabling)
  Sender: FDA-Public Use
  Company Number: GB-ANIPHARMA-2016-UK-000010

PATIENT
  Age: 54 Year
  Sex: Female

DRUGS (2)
  1. QUININE [Concomitant]
     Active Substance: QUININE
     Dosage: 300 MG DAILY
  2. FLUOXETINE HYDROCHLORIDE (NON-SPECIFIC) [Suspect]
     Active Substance: FLUOXETINE HYDROCHLORIDE
     Dosage: UNKNOWN DOSE DAILY
     Route: 065

REACTIONS (2)
  - Optic ischaemic neuropathy [Recovered/Resolved]
  - Blindness [Recovered/Resolved with Sequelae]
